FAERS Safety Report 7424955-6 (Version None)
Quarter: 2011Q2

REPORT INFORMATION
  Report Type: 
  Country: None (occurrence: None)
  Receive Date: 20110419
  Receipt Date: 20110415
  Transmission Date: 20111010
  Serious: Yes (Death)
  Sender: FDA-Public Use
  Company Number: PHHY2011US20320

PATIENT
  Sex: Male
  Weight: 51 kg

DRUGS (28)
  1. VITAMIN D [Concomitant]
     Dosage: 1 DF, DAILY
     Dates: start: 20090520
  2. LEVOTHYROXINE SODIUM [Concomitant]
     Indication: THYROID DISORDER
     Dosage: 1 DF DAILY
     Dates: start: 20100407
  3. CARBIDOPA [Concomitant]
     Indication: PARKINSON'S DISEASE
     Dosage: 1 DF, TID
     Dates: start: 20080726, end: 20110210
  4. BENZONATATE [Concomitant]
     Indication: CARDIAC DISORDER
     Dosage: 1 DF, TID
     Dates: start: 20101203
  5. EXJADE [Suspect]
     Indication: NEOPLASM
     Dosage: 250 MG DAILY
     Route: 048
     Dates: start: 20090421, end: 20090512
  6. BONIVA [Concomitant]
     Dosage: 1 DF, QMO
     Dates: start: 20100104
  7. MIDODRINE HYDROCHLORIDE [Concomitant]
     Indication: ORTHOSTATIC HYPOTENSION
     Dosage: 1 DF, TID
     Dates: start: 20080726
  8. ASPIRIN [Concomitant]
     Indication: ANTICOAGULANT THERAPY
     Dosage: 1 DF, DAILY
     Dates: start: 20080726
  9. FOLIC ACID [Concomitant]
     Dosage: 1 DF, DAILY
     Dates: start: 20080726
  10. ARANESP [Concomitant]
     Dosage: 200 UG, EVERY TWO WEEKS
     Dates: start: 20100930
  11. EXJADE [Suspect]
     Dosage: 250 MG, UNK
     Route: 048
     Dates: start: 20090729
  12. MIRAPEX [Concomitant]
     Indication: PARKINSON'S DISEASE
     Dosage: 1 DF, TID
     Dates: start: 20080726
  13. FLOMAX [Concomitant]
     Dosage: 1 DF, DAILY
     Dates: start: 20080726
  14. MUCINEX [Concomitant]
     Indication: CARDIAC DISORDER
     Dosage: 1 DF, BID
     Dates: start: 20101203
  15. HYDROCODONE [Concomitant]
     Dosage: 500 MG, PRN
     Dates: start: 20080620
  16. EXJADE [Suspect]
     Route: 048
     Dates: start: 20090611
  17. EXJADE [Suspect]
     Dosage: 375 MG, UNK
     Route: 048
     Dates: start: 20090625, end: 20090703
  18. COMTAN [Concomitant]
     Dosage: 1 DF, TID
     Dates: start: 20080728
  19. POLYETHYLENE GLYCOL [Concomitant]
     Dosage: 1 SCOOP WITH LIQUID
     Dates: start: 20080726
  20. FINASTERIDE [Concomitant]
     Indication: PROSTATE CANCER
     Dosage: 1 DF, DAILY
     Dates: start: 20080821
  21. DIVALPROEX SODIUM [Concomitant]
     Dosage: 1 DF, BID
     Dates: start: 20100107
  22. KEPPRA [Concomitant]
     Indication: CONVULSION
     Dosage: 0.5 DF, BID
  23. EXJADE [Suspect]
     Dosage: 375 MG, UNK
     Dates: start: 20091030, end: 20091215
  24. EXJADE [Suspect]
     Dosage: 250 MG, UNK
     Dates: start: 20101201
  25. MELATONIN [Concomitant]
     Indication: SLEEP DISORDER
     Dosage: 1 DF DAILY
     Dates: start: 20091110
  26. PROVIGIL [Concomitant]
     Dosage: 1 DF, DAILY
     Dates: start: 20100105
  27. LEVAQUIN [Concomitant]
     Indication: INFECTION
     Dosage: 1 DF DAILY
     Dates: start: 20101203
  28. LIDODERM [Concomitant]
     Route: 061
     Dates: start: 20080726

REACTIONS (1)
  - DEATH [None]
